FAERS Safety Report 7411615-0 (Version None)
Quarter: 2011Q2

REPORT INFORMATION
  Report Type: 
  Country: None (occurrence: None)
  Receive Date: 20110413
  Receipt Date: 20100929
  Transmission Date: 20111010
  Serious: No
  Sender: FDA-Public Use
  Company Number: US-BRISTOL-MYERS SQUIBB COMPANY-15311434

PATIENT
  Age: 56 Year
  Sex: Male
  Weight: 96 kg

DRUGS (5)
  1. ERBITUX [Suspect]
     Dates: start: 20100917
  2. OXYCODONE [Concomitant]
     Indication: PAIN
  3. TAXOL [Concomitant]
  4. DOXYCYCLINE [Concomitant]
  5. CARBOPLATIN [Concomitant]

REACTIONS (3)
  - TONGUE ULCERATION [None]
  - HYPOAESTHESIA ORAL [None]
  - ACNE [None]
